FAERS Safety Report 6827430-2 (Version None)
Quarter: 2010Q3

REPORT INFORMATION
  Report Type: 
  Country: None (occurrence: None)
  Receive Date: 20100709
  Receipt Date: 20070116
  Transmission Date: 20110219
  Serious: No
  Sender: FDA-Public Use
  Company Number: US-PFIZER INC-2007005426

PATIENT
  Sex: Female

DRUGS (2)
  1. CHANTIX [Suspect]
     Indication: SMOKING CESSATION THERAPY
     Dates: start: 20061101
  2. ORAL CONTRACEPTIVE NOS [Concomitant]

REACTIONS (4)
  - COLD SWEAT [None]
  - NAUSEA [None]
  - NOCTURIA [None]
  - VOMITING [None]
